FAERS Safety Report 8872791 (Version 1)
Quarter: 2012Q4

REPORT INFORMATION
  Report Type: 
  Country: US (occurrence: US)
  Receive Date: 20121026
  Receipt Date: 20121026
  Transmission Date: 20130627
  Serious: No
  Sender: FDA-Public Use
  Company Number: US-AMGEN-USASP2012049788

PATIENT
  Age: 50 Year
  Sex: Female
  Weight: 100.68 kg

DRUGS (16)
  1. ENBREL [Suspect]
     Indication: PRODUCT USED FOR UNKNOWN INDICATION
     Dosage: 50 mg, qwk
     Route: 058
     Dates: start: 2011, end: 201207
  2. VALIUM                             /00017001/ [Concomitant]
     Dosage: 2 mg, UNK
  3. LYRICA [Concomitant]
     Dosage: 25 mg, UNK
  4. CALCIUM + VIT D [Concomitant]
     Dosage: UNK
  5. LEUCOVORIN /00566701/ [Concomitant]
     Dosage: 200 mg, UNK
  6. METHOTREXATE [Concomitant]
     Dosage: 2.5 mg, UNK
  7. PLAQUENIL                          /00072602/ [Concomitant]
     Dosage: 200 mg, UNK
  8. PRILOSEC                           /00661201/ [Concomitant]
     Dosage: 10 mg, UNK
  9. SULFASALAZIN [Concomitant]
     Dosage: 500 mg, UNK
  10. VITAMIN D /00107901/ [Concomitant]
     Dosage: 400 unit, UNK
  11. PREMARIN [Concomitant]
     Dosage: 0.3 mg, UNK
  12. ZANAFLEX [Concomitant]
     Dosage: 2 mg, UNK
  13. VICODIN [Concomitant]
     Dosage: UNK mg, UNK
  14. ADVIL                              /00044201/ [Concomitant]
     Dosage: 200 mg, UNK
  15. ALEVE [Concomitant]
     Dosage: 220 mg, UNK
  16. BENADRYL                           /00000402/ [Concomitant]
     Dosage: 25 mg, UNK

REACTIONS (7)
  - Injection site reaction [Recovered/Resolved]
  - Injection site erythema [Recovered/Resolved]
  - Injection site pruritus [Recovered/Resolved]
  - Injection site rash [Recovered/Resolved]
  - Hyperventilation [Recovered/Resolved]
  - Drug ineffective [Unknown]
  - Dyspnoea [Recovered/Resolved]
